FAERS Safety Report 8561843-6 (Version None)
Quarter: 2012Q3

REPORT INFORMATION
  Report Type: 
  Country: None (occurrence: None)
  Receive Date: 20120802
  Receipt Date: 20120112
  Transmission Date: 20120928
  Serious: Yes (Other)
  Sender: FDA-Public Use
  Company Number: US-ROCHE-1093999

PATIENT
  Sex: Male
  Weight: 109 kg

DRUGS (12)
  1. ZITHROMAX [Concomitant]
     Route: 065
  2. PREDNISONE [Concomitant]
     Route: 065
  3. FLONASE [Concomitant]
     Route: 065
  4. AVELOX [Concomitant]
     Route: 065
  5. FLUTICASONE PROPIONATE [Concomitant]
     Dosage: 500/50
     Route: 065
  6. ALBUTEROL [Concomitant]
     Route: 065
  7. SINGULAIR [Concomitant]
     Route: 065
  8. XOLAIR [Suspect]
     Indication: ASTHMA
     Route: 065
     Dates: start: 20070720
  9. NASONEX [Concomitant]
     Route: 065
  10. ALLEGRA-D 12 HOUR [Concomitant]
     Route: 065
  11. SPIRIVA [Concomitant]
     Route: 065
  12. PREDNISONE [Concomitant]
     Route: 065

REACTIONS (9)
  - DYSPNOEA [None]
  - UPPER RESPIRATORY TRACT INFECTION [None]
  - WHEEZING [None]
  - OROPHARYNGEAL PAIN [None]
  - OBSTRUCTIVE AIRWAYS DISORDER [None]
  - VIRAL INFECTION [None]
  - COUGH [None]
  - RESPIRATORY TRACT INFLAMMATION [None]
  - PEAK EXPIRATORY FLOW RATE DECREASED [None]
